FAERS Safety Report 4380916-5 (Version None)
Quarter: 2004Q2

REPORT INFORMATION
  Report Type: 
  Country: None (occurrence: None)
  Receive Date: 20040616
  Receipt Date: 20040609
  Transmission Date: 20050107
  Serious: Yes (Hospitalization)
  Sender: FDA-Public Use
  Company Number: 2004-06-0426

PATIENT
  Age: 59 Year
  Sex: Female

DRUGS (3)
  1. AERIUS (DESLORATADINE) TABLETS 'LIKE CLARINEX' [Suspect]
     Indication: ARTHROPOD STING
     Dosage: ORAL
     Route: 048
     Dates: start: 20040428, end: 20040429
  2. PYOSTACINE [Suspect]
     Indication: ARTHROPOD STING
     Dates: start: 20040428, end: 20040429
  3. FUCIDINE OINTMENT [Suspect]
     Indication: ARTHROPOD STING
     Dosage: UNKNOWN TOP-DERM
     Dates: start: 20040428, end: 20040429

REACTIONS (2)
  - PURPURA [None]
  - TOXIC SKIN ERUPTION [None]
